FAERS Safety Report 24929342 (Version 1)
Quarter: 2025Q1

REPORT INFORMATION
  Report Type: Spontaneous
  Country: US (occurrence: US)
  Receive Date: 20250205
  Receipt Date: 20250205
  Transmission Date: 20250409
  Serious: No
  Sender: ALNYLAM PHARMACEUTICALS
  Company Number: US-ALNYLAM PHARMACEUTICALS, INC.-ALN-2025-000721

PATIENT

DRUGS (3)
  1. GIVLAARI [Suspect]
     Active Substance: GIVOSIRAN SODIUM
     Indication: Porphyria
     Route: 065
  2. GIVLAARI [Suspect]
     Active Substance: GIVOSIRAN SODIUM
     Route: 065
  3. PANHEMATIN [Concomitant]
     Active Substance: HEMIN
     Indication: Porphyria
     Route: 065

REACTIONS (2)
  - Liver injury [Unknown]
  - Vitamin B6 decreased [Unknown]
